FAERS Safety Report 5814806-5 (Version None)
Quarter: 2008Q3

REPORT INFORMATION
  Report Type: 
  Country: None (occurrence: None)
  Receive Date: 20080715
  Receipt Date: 20080630
  Transmission Date: 20090109
  Serious: Yes (Hospitalization)
  Sender: FDA-Public Use
  Company Number: 2008001552

PATIENT
  Age: 82 Year
  Sex: Female

DRUGS (9)
  1. ERLOTINIB(TABLET) [Suspect]
     Indication: LUNG ADENOCARCINOMA
     Dosage: 150 MG, QD, ORAL
     Route: 048
     Dates: start: 20080523, end: 20080610
  2. GEFITINIB [Suspect]
  3. IMIDAPRIL (IMIDAPRIL) [Concomitant]
  4. NORVASC [Concomitant]
  5. PRAVASTATIN [Concomitant]
  6. NAPROXEN [Concomitant]
  7. CROMOLYN SOEIUM (CROMOGLICATE SODIUM) [Concomitant]
  8. FAMOTIDINE [Concomitant]
  9. REBAMIPIDE (REBAMIPIDE) [Concomitant]

REACTIONS (1)
  - DUODENAL PERFORATION [None]
